FAERS Safety Report 8566875 (Version 3)
Quarter: 2013Q4

REPORT INFORMATION
  Report Type: Spontaneous
  Country: US (occurrence: US)
  Receive Date: 20120514
  Receipt Date: 20131101
  Transmission Date: 20140711
  Serious: Yes (Hospitalization, Other)
  Sender: FDA-Public Use
  Company Number: US-009507513-2012SP023729

PATIENT
  Age: 19 Year
  Sex: Female

DRUGS (1)
  1. NEXPLANON [Suspect]
     Route: 059
     Dates: start: 20100907, end: 20120221

REACTIONS (2)
  - Abortion spontaneous [Recovered/Resolved]
  - Pregnancy with implant contraceptive [Recovered/Resolved]
